FAERS Safety Report 5465437-0 (Version None)
Quarter: 2007Q3

REPORT INFORMATION
  Report Type: 
  Country: None (occurrence: None)
  Receive Date: 20070920
  Receipt Date: 20070920
  Transmission Date: 20080115
  Serious: No
  Sender: FDA-Public Use
  Company Number: None

PATIENT
  Age: 70 Year
  Sex: Male

DRUGS (1)
  1. MESALAMINE [Suspect]
     Indication: CROHN'S DISEASE
     Dates: start: 20070101, end: 20070705

REACTIONS (1)
  - URINARY RETENTION [None]
